FAERS Safety Report 7650777-7 (Version None)
Quarter: 2011Q3

REPORT INFORMATION
  Report Type: 
  Country: None (occurrence: None)
  Receive Date: 20110802
  Receipt Date: 20110726
  Transmission Date: 20111222
  Serious: Yes (Other)
  Sender: FDA-Public Use
  Company Number: JP-MERCK-1107USA03875

PATIENT
  Age: 42 Year
  Sex: Female

DRUGS (4)
  1. FOSAMAX [Suspect]
     Indication: OSTEOPOROSIS
     Route: 048
     Dates: start: 20110626, end: 20110710
  2. ALFAROL [Concomitant]
     Indication: OSTEOPOROSIS
     Route: 048
     Dates: start: 20110626, end: 20110710
  3. FOIPAN [Concomitant]
     Indication: PANCREATITIS CHRONIC
     Route: 048
     Dates: start: 20101101
  4. PEPCID [Concomitant]
     Indication: PANCREATITIS CHRONIC
     Route: 048
     Dates: start: 20101101

REACTIONS (1)
  - LIVER FUNCTION TEST ABNORMAL [None]
